FAERS Safety Report 19368963 (Version 3)
Quarter: 2021Q2

REPORT INFORMATION
  Report Type: Report from Study
  Country: US (occurrence: US)
  Receive Date: 20210602
  Receipt Date: 20210622
  Transmission Date: 20210717
  Serious: Yes (Hospitalization, Other)
  Sender: FDA-Public Use
  Company Number: US-BIOGEN-2021BI01016155

PATIENT
  Age: 45 Year
  Sex: Female

DRUGS (25)
  1. VUMERITY [Suspect]
     Active Substance: DIROXIMEL FUMARATE
     Dosage: MAINTENANCE DOSE
     Route: 048
     Dates: start: 20210102
  2. ELAVIL [Concomitant]
     Active Substance: AMITRIPTYLINE HYDROCHLORIDE
     Indication: PRODUCT USED FOR UNKNOWN INDICATION
     Dosage: AT BEDTIME
     Route: 048
     Dates: start: 20210126, end: 20210527
  3. VUMERITY [Suspect]
     Active Substance: DIROXIMEL FUMARATE
     Indication: RELAPSING-REMITTING MULTIPLE SCLEROSIS
     Route: 065
     Dates: start: 20201226
  4. VUMERITY [Suspect]
     Active Substance: DIROXIMEL FUMARATE
     Dosage: STARTING DOSE
     Route: 048
     Dates: start: 20201226, end: 20210101
  5. PROVENTIL [Concomitant]
     Active Substance: ALBUTEROL
     Indication: WHEEZING
     Dosage: INHALE 2 PUFFS BY MOUTH EVERY 4 HOURS AS NEEDED
     Route: 065
     Dates: start: 20191024, end: 20210511
  6. VUMERITY [Suspect]
     Active Substance: DIROXIMEL FUMARATE
     Route: 048
     Dates: start: 20210417
  7. VUMERITY [Suspect]
     Active Substance: DIROXIMEL FUMARATE
     Dosage: MAINTENANCE DOSE
     Route: 048
     Dates: start: 20210510
  8. VUMERITY [Suspect]
     Active Substance: DIROXIMEL FUMARATE
     Dosage: ONE CAP ONCE DAILY X1WEEK, 1 CAP TWICE DAILY X1WEEK, AND 2 CAPS TWICE A DAY THEREAFTER.
     Route: 048
     Dates: start: 20210417
  9. VITAMIN D [Concomitant]
     Active Substance: VITAMIN D NOS
     Indication: PRODUCT USED FOR UNKNOWN INDICATION
     Route: 065
  10. TYLENOL [Concomitant]
     Active Substance: ACETAMINOPHEN
     Indication: PAIN
     Dosage: AS NEEDED
     Route: 048
     Dates: start: 20210126
  11. ZOFRAN [Concomitant]
     Active Substance: ONDANSETRON HYDROCHLORIDE
     Indication: NAUSEA
     Dosage: UNTIL 03 JUL 2021; TAKE 1 TABLET BY MOUTH EVERY 6 HOURS AS NEEDED FOR NAUSEA VOMITING. PLACE 1 TA...
     Route: 050
     Dates: start: 20210404
  12. DULOXETINE. [Concomitant]
     Active Substance: DULOXETINE
     Indication: PRODUCT USED FOR UNKNOWN INDICATION
     Route: 065
  13. PROVENTIL HFA [Concomitant]
     Active Substance: ALBUTEROL SULFATE
     Indication: WHEEZING
     Dosage: INHALE 2 PUFFS BY MOUTH EVERY 4 HOURS AS NEEDED
     Route: 065
     Dates: start: 20191024, end: 20210511
  14. SENOKOT [Concomitant]
     Active Substance: SENNOSIDES
     Indication: CONSTIPATION
     Dosage: TAKE 1 TABLET BY MOUTH DAILY AS NEEDED
     Route: 048
     Dates: start: 20210419
  15. VUMERITY [Suspect]
     Active Substance: DIROXIMEL FUMARATE
     Route: 048
  16. VUMERITY [Suspect]
     Active Substance: DIROXIMEL FUMARATE
     Dosage: STARTING DOSE
     Route: 048
     Dates: start: 20210121, end: 20210503
  17. VITAMIN C [Concomitant]
     Active Substance: ASCORBIC ACID
     Indication: PRODUCT USED FOR UNKNOWN INDICATION
     Route: 065
  18. LOTREL [Concomitant]
     Active Substance: AMLODIPINE BESYLATE\BENAZEPRIL HYDROCHLORIDE
     Indication: PRODUCT USED FOR UNKNOWN INDICATION
     Dosage: 5?20MG PER CAPSULE; DAILY
     Route: 048
     Dates: start: 20210126, end: 20210527
  19. VENTOLIN [Concomitant]
     Active Substance: ALBUTEROL SULFATE
     Indication: WHEEZING
     Dosage: INHALE 2 PUFFS BY MOUTH EVERY 4 HOURS AS NEEDED
     Route: 065
     Dates: start: 20191024, end: 20210511
  20. MIRALAX [Concomitant]
     Active Substance: POLYETHYLENE GLYCOL 3350
     Indication: PRODUCT USED FOR UNKNOWN INDICATION
     Dosage: DISSOLVE 1 PACKET IN 8 OUNCES OF LIQUID AND DRINK DAILY
     Route: 048
     Dates: start: 20210419
  21. LYRICA [Concomitant]
     Active Substance: PREGABALIN
     Indication: PRODUCT USED FOR UNKNOWN INDICATION
     Route: 065
  22. VUMERITY [Suspect]
     Active Substance: DIROXIMEL FUMARATE
     Route: 048
  23. BIOTIN [Concomitant]
     Active Substance: BIOTIN
     Indication: PRODUCT USED FOR UNKNOWN INDICATION
     Route: 065
  24. PROAIR HFA [Concomitant]
     Active Substance: ALBUTEROL SULFATE
     Indication: WHEEZING
     Dosage: INHALE 2 PUFFS BY MOUTH EVERY 4 HOURS AS NEEDED
     Route: 065
     Dates: start: 20191024, end: 20210511
  25. PRILOSEC [Concomitant]
     Active Substance: OMEPRAZOLE MAGNESIUM
     Indication: PRODUCT USED FOR UNKNOWN INDICATION
     Dosage: TAKE 1 CAPSULE BY MOUTH DAILY (30 MINUTES BEFORE BREAKFAST)
     Route: 048
     Dates: start: 20210126, end: 20210527

REACTIONS (16)
  - Flushing [Recovered/Resolved]
  - Cholecystitis [Unknown]
  - Biliary dilatation [Unknown]
  - Intentional product misuse [Unknown]
  - Urticaria [Recovered/Resolved]
  - Hiatus hernia [Unknown]
  - Gastrointestinal pain [Recovered/Resolved]
  - Diverticulitis [Unknown]
  - Faecal volume increased [Unknown]
  - Bladder dilatation [Unknown]
  - Cholelithiasis [Unknown]
  - Biliary fistula [Unknown]
  - Hepatic steatosis [Unknown]
  - Cholecystitis infective [Recovered/Resolved]
  - Procedural pain [Unknown]
  - Drug ineffective [Unknown]

NARRATIVE: CASE EVENT DATE: 20201226
